FAERS Safety Report 12612973 (Version 1)
Quarter: 2016Q3

REPORT INFORMATION
  Report Type: Other
  Country: IN (occurrence: IN)
  Receive Date: 20160802
  Receipt Date: 20160802
  Transmission Date: 20161109
  Serious: Yes (Hospitalization, Other)
  Sender: FDA-Public Use
  Company Number: IN-DEXPHARM-20161557

PATIENT
  Age: 25 Year
  Sex: Male

DRUGS (9)
  1. BUTORPHANOL [Concomitant]
     Active Substance: BUTORPHANOL
     Indication: PREOPERATIVE CARE
  2. ONDANSETRON [Concomitant]
     Active Substance: ONDANSETRON
     Indication: PREOPERATIVE CARE
  3. ISOFLURANE. [Concomitant]
     Active Substance: ISOFLURANE
     Indication: ANAESTHESIA
  4. NITROUS OXIDE. [Concomitant]
     Active Substance: NITROUS OXIDE
     Indication: ANAESTHESIA
  5. ALBENDAZOLE [Concomitant]
     Active Substance: ALBENDAZOLE
     Route: 048
  6. MIDAZOLAM [Concomitant]
     Active Substance: MIDAZOLAM\MIDAZOLAM HYDROCHLORIDE
     Indication: PREOPERATIVE CARE
  7. VECURONIUM [Concomitant]
     Active Substance: VECURONIUM BROMIDE
     Indication: PARALYSIS
  8. SAVLON [Suspect]
     Active Substance: CETRIMIDE\CHLORHEXIDINE
     Indication: STERILISATION
  9. PROPOFOL. [Concomitant]
     Active Substance: PROPOFOL
     Indication: ANAESTHESIA

REACTIONS (4)
  - Shock [Recovered/Resolved]
  - Acute kidney injury [Recovered/Resolved]
  - Metabolic acidosis [Recovered/Resolved]
  - Acute lung injury [Recovered/Resolved]
